FAERS Safety Report 12076753 (Version 2)
Quarter: 2016Q1

REPORT INFORMATION
  Report Type: Spontaneous
  Country: JP (occurrence: JP)
  Receive Date: 20160215
  Receipt Date: 20160301
  Transmission Date: 20160526
  Serious: Yes (Hospitalization, Other)
  Sender: FDA-Public Use
  Company Number: JP-JNJFOC-20160205734

PATIENT
  Age: 46 Year
  Sex: Female

DRUGS (15)
  1. CONTOMIN [Suspect]
     Active Substance: CHLORPROMAZINE
     Indication: SCHIZOPHRENIA
     Dosage: 25 MG AT 18 TABLETS FOR 3 DAYS.
     Route: 048
  2. AKINETON [Suspect]
     Active Substance: BIPERIDEN HYDROCHLORIDE
     Indication: SCHIZOPHRENIA
     Route: 048
  3. METLIGINE [Suspect]
     Active Substance: MIDODRINE HYDROCHLORIDE
     Indication: SCHIZOPHRENIA
     Dosage: 2 MG AT 3 TABLETS
     Route: 048
  4. RISPERDAL [Suspect]
     Active Substance: RISPERIDONE
     Indication: SCHIZOPHRENIA
     Dosage: 3 MG AT 9 TABLETS FOR 3 DAYS
     Route: 048
  5. AKINETON [Suspect]
     Active Substance: BIPERIDEN HYDROCHLORIDE
     Indication: SCHIZOPHRENIA
     Route: 048
  6. SERENACE [Suspect]
     Active Substance: HALOPERIDOL
     Indication: SCHIZOPHRENIA
     Route: 048
  7. METLIGINE [Suspect]
     Active Substance: MIDODRINE HYDROCHLORIDE
     Indication: SCHIZOPHRENIA
     Route: 048
  8. RISPERDAL [Suspect]
     Active Substance: RISPERIDONE
     Indication: SCHIZOPHRENIA
     Route: 048
  9. SERENACE [Suspect]
     Active Substance: HALOPERIDOL
     Indication: SCHIZOPHRENIA
     Dosage: 3 MG AT 9 TABLETS FOR 3 DAYS
     Route: 048
  10. AKINETON [Suspect]
     Active Substance: BIPERIDEN HYDROCHLORIDE
     Indication: SCHIZOPHRENIA
     Dosage: 2 MG AT 9 TABLETS FOR 3 DAYS
     Route: 048
  11. METLIGINE [Suspect]
     Active Substance: MIDODRINE HYDROCHLORIDE
     Indication: SCHIZOPHRENIA
     Route: 048
  12. CONTOMIN [Suspect]
     Active Substance: CHLORPROMAZINE
     Indication: SCHIZOPHRENIA
     Route: 048
  13. RISPERDAL [Suspect]
     Active Substance: RISPERIDONE
     Indication: SCHIZOPHRENIA
     Route: 048
  14. SERENACE [Suspect]
     Active Substance: HALOPERIDOL
     Indication: SCHIZOPHRENIA
     Route: 048
  15. CONTOMIN [Suspect]
     Active Substance: CHLORPROMAZINE
     Indication: SCHIZOPHRENIA
     Route: 048

REACTIONS (3)
  - Intentional overdose [Recovered/Resolved]
  - Altered state of consciousness [Recovered/Resolved]
  - Toxicity to various agents [Recovered/Resolved]
